FAERS Safety Report 8362685-7 (Version None)
Quarter: 2012Q2

REPORT INFORMATION
  Report Type: 
  Country: None (occurrence: None)
  Receive Date: 20120516
  Receipt Date: 20111215
  Transmission Date: 20120825
  Serious: No
  Sender: FDA-Public Use
  Company Number: US-MYLANLABS-2011S1025808

PATIENT
  Age: 69 Year
  Sex: Female

DRUGS (9)
  1. VITAMIN D [Concomitant]
  2. FLURAZEPAM [Concomitant]
  3. CALCIUM [Concomitant]
  4. SYNTHROID [Concomitant]
  5. VITAMIN B-12 [Concomitant]
     Route: 058
  6. BUPROPION HYDROCHLORIDE [Suspect]
     Indication: DEPRESSION
     Dosage: CHANGED QWK
     Route: 048
     Dates: start: 20111214, end: 20111221
  7. SYNTHROID [Concomitant]
  8. FOLIC ACID [Concomitant]
  9. VITAMIN TAB [Concomitant]

REACTIONS (2)
  - FEELING JITTERY [None]
  - TREMOR [None]
